FAERS Safety Report 16864478 (Version 1)
Quarter: 2019Q3

REPORT INFORMATION
  Report Type: Spontaneous
  Country: US (occurrence: US)
  Receive Date: 20190928
  Receipt Date: 20190928
  Transmission Date: 20191005
  Serious: Yes (Other)
  Sender: FDA-Public Use
  Company Number: US-ACCORD-155882

PATIENT
  Age: 80 Year
  Sex: Female

DRUGS (6)
  1. CYANOCOBALAMIN. [Concomitant]
     Active Substance: CYANOCOBALAMIN
  2. URSODIOL. [Concomitant]
     Active Substance: URSODIOL
  3. ACETYLSALICYLIC ACID [Concomitant]
     Active Substance: ASPIRIN
  4. MYCOPHENOLIC ACID ACCORD [Suspect]
     Active Substance: MYCOPHENOLIC ACID
     Indication: LIVER TRANSPLANT
     Dosage: BID
     Route: 048
  5. DIHYDROCODEINE/PARACETAMOL [Concomitant]
  6. METOPROLOL. [Concomitant]
     Active Substance: METOPROLOL

REACTIONS (3)
  - Cerebrovascular accident [Recovering/Resolving]
  - Tremor [Recovering/Resolving]
  - Blood pressure systolic increased [Recovering/Resolving]
